FAERS Safety Report 9708747 (Version 1)
Quarter: 2013Q4

REPORT INFORMATION
  Report Type: Spontaneous
  Country: GB (occurrence: GB)
  Receive Date: 20131125
  Receipt Date: 20131125
  Transmission Date: 20140711
  Serious: Yes (Other)
  Sender: FDA-Public Use
  Company Number: GB-TEVA-446101ISR

PATIENT
  Age: 38 Year
  Sex: Female

DRUGS (3)
  1. BROMOCRIPTINE [Suspect]
     Indication: PROLACTINOMA
     Route: 065
  2. CABERGOLINE [Suspect]
     Indication: PROLACTINOMA
     Route: 065
  3. QUINAGOLIDE [Suspect]
     Indication: PROLACTINOMA
     Route: 065

REACTIONS (1)
  - Neutropenia [Unknown]
